FAERS Safety Report 6458742-2 (Version None)
Quarter: 2009Q4

REPORT INFORMATION
  Report Type: 
  Country: None (occurrence: None)
  Receive Date: 20091127
  Receipt Date: 20091116
  Transmission Date: 20100525
  Serious: Yes (Other)
  Sender: FDA-Public Use
  Company Number: IL-ROCHE-669404

PATIENT
  Age: 5 Year
  Sex: Female

DRUGS (8)
  1. CLONAZEPAM [Suspect]
     Indication: EPILEPSY
     Route: 065
  2. PHENOBARBITAL [Suspect]
     Indication: EPILEPSY
     Route: 065
  3. VALPROIC ACID [Suspect]
     Indication: EPILEPSY
     Route: 065
  4. CLOBAZAM [Suspect]
     Indication: EPILEPSY
     Route: 065
  5. TOPIRAMATE [Suspect]
     Indication: EPILEPSY
     Route: 065
  6. LAMOTRIGINE [Suspect]
     Indication: EPILEPSY
     Route: 065
  7. FELBAMATE [Suspect]
     Indication: EPILEPSY
     Route: 065
  8. THIAMINE [Concomitant]
     Indication: VITAMIN B1 DEFICIENCY

REACTIONS (4)
  - CONVULSION [None]
  - HYPOTONIA [None]
  - MENTAL RETARDATION [None]
  - NYSTAGMUS [None]
